FAERS Safety Report 9286057 (Version 1)
Quarter: 2013Q2

REPORT INFORMATION
  Report Type: Spontaneous
  Country: CH (occurrence: CH)
  Receive Date: 20130513
  Receipt Date: 20130513
  Transmission Date: 20140414
  Serious: Yes (Hospitalization)
  Sender: FDA-Public Use
  Company Number: CH-BAYER-2013-055097

PATIENT
  Age: 40 Year
  Sex: Female

DRUGS (1)
  1. ASPIRIN KAUTABLETTEN [Suspect]
     Indication: HEADACHE
     Dosage: 500 MG, BID
     Route: 048
     Dates: start: 201210, end: 20121216

REACTIONS (2)
  - Renal tubular disorder [Not Recovered/Not Resolved]
  - Hypertension [Recovered/Resolved]
